FAERS Safety Report 15461945 (Version 3)
Quarter: 2018Q4

REPORT INFORMATION
  Report Type: Report from Study
  Country: FR (occurrence: FR)
  Receive Date: 20181003
  Receipt Date: 20181127
  Transmission Date: 20190204
  Serious: Yes (Hospitalization)
  Sender: FDA-Public Use
  Company Number: FR-B.I. PHARMACEUTICALS,INC./RIDGEFIELD-2018-BI-039484

PATIENT
  Age: 49 Year
  Sex: Female
  Weight: 47 kg

DRUGS (8)
  1. ACTISKENAN [Concomitant]
     Active Substance: MORPHINE SULFATE
     Indication: PAIN
     Route: 048
     Dates: start: 20180607
  2. CARBOPLATINE [Suspect]
     Active Substance: CARBOPLATIN
     Route: 042
     Dates: start: 20180607, end: 20180926
  3. PACLITAXEL. [Suspect]
     Active Substance: PACLITAXEL
     Indication: ENDOMETRIAL CANCER RECURRENT
     Dosage: UNIT AND DAILY DOSE- 258
     Route: 042
     Dates: start: 20170607
  4. INNOHEP [Concomitant]
     Active Substance: TINZAPARIN SODIUM
     Indication: DEEP VEIN THROMBOSIS
     Route: 058
     Dates: start: 201806
  5. NINTEDANIB [Suspect]
     Active Substance: NINTEDANIB
     Indication: ENDOMETRIAL CANCER RECURRENT
     Dosage: THE LAST KIT TYPE ASSIGNED TO THIS PATIENT WAS NINTEDANIB 150MG CAPSULES.
     Route: 048
     Dates: start: 20180607, end: 20181012
  6. CARBOPLATINE [Suspect]
     Active Substance: CARBOPLATIN
     Indication: ENDOMETRIAL CANCER RECURRENT
     Dosage: UNIT AND DAILY DOSE- 360
     Route: 042
     Dates: start: 20170607
  7. SKENAN [Concomitant]
     Active Substance: MORPHINE SULFATE
     Indication: PAIN
     Route: 048
     Dates: start: 20180607
  8. PACLITAXEL. [Suspect]
     Active Substance: PACLITAXEL
     Route: 042
     Dates: start: 20180607, end: 20180926

REACTIONS (3)
  - Abdominal pain upper [Not Recovered/Not Resolved]
  - Gastrooesophageal reflux disease [Recovered/Resolved]
  - Fistula [Not Recovered/Not Resolved]

NARRATIVE: CASE EVENT DATE: 20180730
